FAERS Safety Report 24891681 (Version 1)
Quarter: 2025Q1

REPORT INFORMATION
  Report Type: Spontaneous
  Country: US (occurrence: US)
  Receive Date: 20250127
  Receipt Date: 20250127
  Transmission Date: 20250409
  Serious: No
  Sender: MERCK
  Company Number: US-009507513-2501USA009423

PATIENT
  Sex: Female

DRUGS (1)
  1. KEYTRUDA [Suspect]
     Active Substance: PEMBROLIZUMAB
     Dosage: UNK, Q3W

REACTIONS (3)
  - Product dose omission issue [Unknown]
  - Economic problem [Unknown]
  - No adverse event [Unknown]

NARRATIVE: CASE EVENT DATE: 20250121
